FAERS Safety Report 11627992 (Version 1)
Quarter: 2015Q4

REPORT INFORMATION
  Report Type: Spontaneous
  Country: US (occurrence: US)
  Receive Date: 20151014
  Receipt Date: 20151014
  Transmission Date: 20160304
  Serious: No
  Sender: FDA-Public Use
  Company Number: US-ASTRAZENECA-2015SE95896

PATIENT
  Age: 26288 Day
  Sex: Male
  Weight: 93 kg

DRUGS (5)
  1. CHLORTHALIDONE. [Concomitant]
     Active Substance: CHLORTHALIDONE
  2. COLESTIPOL [Concomitant]
     Active Substance: COLESTIPOL
  3. GLIMEPIRIDE. [Concomitant]
     Active Substance: GLIMEPIRIDE
     Indication: TYPE 2 DIABETES MELLITUS
  4. BYDUREON [Suspect]
     Active Substance: EXENATIDE
     Indication: TYPE 2 DIABETES MELLITUS
     Route: 058
     Dates: start: 20151001
  5. RAMIPRIL. [Concomitant]
     Active Substance: RAMIPRIL

REACTIONS (3)
  - Product quality issue [Unknown]
  - Underdose [Unknown]
  - Diabetes mellitus inadequate control [Unknown]

NARRATIVE: CASE EVENT DATE: 20151001
